FAERS Safety Report 25345849 (Version 1)
Quarter: 2025Q2

REPORT INFORMATION
  Report Type: Spontaneous
  Country: US (occurrence: US)
  Receive Date: 20250522
  Receipt Date: 20250522
  Transmission Date: 20250716
  Serious: No
  Sender: BIONPHARMA INC.
  Company Number: US-Bion-014947

PATIENT
  Age: 66 Year
  Sex: Female

DRUGS (6)
  1. NIMODIPINE [Suspect]
     Active Substance: NIMODIPINE
     Indication: Migraine
     Route: 048
     Dates: start: 202501
  2. CLONIDINE [Concomitant]
     Active Substance: CLONIDINE
     Indication: Blood pressure measurement
  3. TRIAMTERENE [Concomitant]
     Active Substance: TRIAMTERENE
     Indication: Blood pressure measurement
  4. XARELTO [Concomitant]
     Active Substance: RIVAROXABAN
     Indication: Product used for unknown indication
  5. FEMARA [Concomitant]
     Active Substance: LETROZOLE
     Indication: Product used for unknown indication
  6. NIMODIPINE [Suspect]
     Active Substance: NIMODIPINE
     Indication: Migraine
     Route: 048
     Dates: start: 202501

REACTIONS (3)
  - Poor quality product administered [Unknown]
  - Product odour abnormal [Unknown]
  - Drug ineffective [Not Recovered/Not Resolved]
